FAERS Safety Report 22332235 (Version 1)
Quarter: 2023Q2

REPORT INFORMATION
  Report Type: Spontaneous
  Country: US (occurrence: US)
  Receive Date: 20230517
  Receipt Date: 20230517
  Transmission Date: 20230721
  Serious: No
  Sender: FDA-Public Use
  Company Number: US-BRISTOL-MYERS SQUIBB COMPANY-2023-068547

PATIENT
  Age: 71 Year
  Sex: Female
  Weight: 73.5 kg

DRUGS (1)
  1. REVLIMID [Suspect]
     Active Substance: LENALIDOMIDE
     Indication: Plasma cell myeloma
     Dosage: DAILY X 21DS OF 28-D CYCLE
     Route: 048
     Dates: start: 20221201

REACTIONS (1)
  - Hypotension [Not Recovered/Not Resolved]
